FAERS Safety Report 7323638-0 (Version None)
Quarter: 2011Q1

REPORT INFORMATION
  Report Type: 
  Country: None (occurrence: None)
  Receive Date: 20110301
  Receipt Date: 20110221
  Transmission Date: 20110831
  Serious: Yes (Hospitalization)
  Sender: FDA-Public Use
  Company Number: US-ASTRAZENECA-2011SE09806

PATIENT
  Age: 53 Year
  Sex: Male
  Weight: 99.8 kg

DRUGS (1)
  1. NEXIUM [Suspect]
     Route: 048

REACTIONS (3)
  - INCREASED APPETITE [None]
  - ANKLE FRACTURE [None]
  - GASTROOESOPHAGEAL REFLUX DISEASE [None]
